FAERS Safety Report 14123813 (Version 1)
Quarter: 2017Q4

REPORT INFORMATION
  Report Type: Spontaneous
  Country: US (occurrence: US)
  Receive Date: 20171025
  Receipt Date: 20171025
  Transmission Date: 20180321
  Serious: No
  Sender: FDA-Public Use
  Company Number: US-GALDERMA-US16006808

PATIENT
  Age: 23 Year
  Sex: Male

DRUGS (1)
  1. CAPEX [Suspect]
     Active Substance: FLUOCINOLONE ACETONIDE
     Indication: PRODUCT USED FOR UNKNOWN INDICATION
     Dosage: 0.01%
     Route: 061

REACTIONS (1)
  - Alopecia [Unknown]
